FAERS Safety Report 6711069-3 (Version None)
Quarter: 2010Q2

REPORT INFORMATION
  Report Type: 
  Country: None (occurrence: None)
  Receive Date: 20100505
  Receipt Date: 20100330
  Transmission Date: 20101027
  Serious: No
  Sender: FDA-Public Use
  Company Number: US-KINGPHARMUSA00001-K201000375

PATIENT
  Sex: Female

DRUGS (11)
  1. AVINZA [Suspect]
     Dosage: 60 MG, QD
     Dates: start: 20100325
  2. ULTRAM [Concomitant]
  3. TRICOR [Concomitant]
  4. CALCIUM [Concomitant]
  5. PRILOSEC [Concomitant]
  6. ACETAMINOPHEN [Concomitant]
  7. OXYBUTYNIN [Concomitant]
  8. ALENDRONATE [Concomitant]
  9. LORATADINE [Concomitant]
  10. SKELAXIN [Concomitant]
  11. ZOLOFT [Concomitant]

REACTIONS (1)
  - DRY MOUTH [None]
